FAERS Safety Report 8794307 (Version 2)
Quarter: 2012Q4

REPORT INFORMATION
  Report Type: 
  Country: CA (occurrence: CA)
  Receive Date: 20120918
  Receipt Date: 20121101
  Transmission Date: 20130627
  Serious: Yes (Other)
  Sender: FDA-Public Use
  Company Number: CA-AMGEN-CANSP2012057693

PATIENT
  Age: 65 Year
  Sex: Female
  Weight: 96 kg

DRUGS (6)
  1. PROLIA [Suspect]
     Indication: OSTEOPOROSIS
     Dosage: 60 mg, q6mo
     Route: 058
     Dates: start: 20120405
  2. COUMADIN                           /00014802/ [Concomitant]
     Indication: ATRIAL FIBRILLATION
  3. DILTIAZEM [Concomitant]
     Indication: ATRIAL FIBRILLATION
  4. PANTOPRAZOLE [Concomitant]
     Indication: HIATUS HERNIA
  5. VITAMIN D 2000 [Concomitant]
  6. CALCIUM [Concomitant]

REACTIONS (2)
  - Spinal compression fracture [Unknown]
  - Back pain [Unknown]
